FAERS Safety Report 10236403 (Version 1)
Quarter: 2014Q2

REPORT INFORMATION
  Report Type: Spontaneous
  Country: IN (occurrence: IN)
  Receive Date: 20140613
  Receipt Date: 20140613
  Transmission Date: 20141212
  Serious: Yes (Other)
  Sender: FDA-Public Use
  Company Number: IN-WATSON-2014-13304

PATIENT
  Age: 55 Year
  Sex: Female

DRUGS (1)
  1. AMLODIPINE (UNKNOWN) [Suspect]
     Indication: HYPERTENSION
     Dosage: 5 MG, DAILY
     Route: 048

REACTIONS (1)
  - Gingival hyperplasia [Recovering/Resolving]
